FAERS Safety Report 6579925-7 (Version None)
Quarter: 2010Q1

REPORT INFORMATION
  Report Type: 
  Country: None (occurrence: None)
  Receive Date: 20100212
  Receipt Date: 20100203
  Transmission Date: 20100710
  Serious: Yes (Hospitalization, Other)
  Sender: FDA-Public Use
  Company Number: JP-ABBOTT-09P-087-0598045-00

PATIENT
  Age: 61 Year
  Sex: Female

DRUGS (6)
  1. FENOFIBRATE [Suspect]
     Indication: DRUG USE FOR UNKNOWN INDICATION
     Dosage: 134MG DAILY
     Route: 048
     Dates: start: 20090629, end: 20090901
  2. LOSARTAN POTASSIUM [Suspect]
     Indication: DRUG USE FOR UNKNOWN INDICATION
     Dosage: 75MG DAILY
     Route: 048
     Dates: start: 20040401, end: 20090901
  3. WARFARIN POTASSIUM [Suspect]
     Indication: DRUG USE FOR UNKNOWN INDICATION
     Dosage: 3MG , 4MG ALTERNATING DAY REGIMEN
     Route: 048
     Dates: start: 20040401, end: 20090901
  4. VOGLIBOSE [Suspect]
     Indication: DRUG USE FOR UNKNOWN INDICATION
     Dosage: 0.9MG DAILY
     Route: 048
     Dates: start: 20040401, end: 20090901
  5. METFORMIN HYDROCHLORIDE [Suspect]
     Indication: DRUG USE FOR UNKNOWN INDICATION
     Dosage: 750MG DAILY
     Route: 048
     Dates: start: 20040401, end: 20090901
  6. METILDIGOXIN [Concomitant]
     Indication: DRUG USE FOR UNKNOWN INDICATION
     Dates: start: 20040401, end: 20090901

REACTIONS (4)
  - ALANINE AMINOTRANSFERASE INCREASED [None]
  - ASPARTATE AMINOTRANSFERASE INCREASED [None]
  - GAMMA-GLUTAMYLTRANSFERASE INCREASED [None]
  - LIVER FUNCTION TEST ABNORMAL [None]
